FAERS Safety Report 6411302-1 (Version None)
Quarter: 2009Q4

REPORT INFORMATION
  Report Type: 
  Country: None (occurrence: None)
  Receive Date: 20091023
  Receipt Date: 20091013
  Transmission Date: 20100525
  Serious: Yes (Other)
  Sender: FDA-Public Use
  Company Number: FR-PFIZER INC-2009254405

PATIENT
  Age: 56 Year

DRUGS (7)
  1. INSPRA [Suspect]
     Indication: BLOOD ALDOSTERONE
     Dosage: 25 MG, 1X/DAY
     Route: 048
     Dates: start: 20090301, end: 20090803
  2. INSPRA [Suspect]
     Indication: HYPERTENSION
  3. INSULIN [Concomitant]
     Indication: DIABETES MELLITUS
     Dosage: UNK
     Route: 058
     Dates: start: 19710101
  4. SIMVASTATIN [Concomitant]
     Indication: HYPERCHOLESTEROLAEMIA
  5. VALSARTAN AND HYDROCHLOROTHIAZIDE [Concomitant]
     Indication: HYPERTENSION
  6. IRBESARTAN [Concomitant]
     Indication: HYPERTENSION
     Dosage: 300 MG, 1X/DAY
     Route: 048
     Dates: start: 20050101
  7. ISOPTIN [Concomitant]
     Indication: HYPERTENSION
     Dosage: 120 MG, 2X/DAY
     Route: 048
     Dates: start: 20060101

REACTIONS (2)
  - CHOLESTASIS [None]
  - HEPATITIS [None]
